FAERS Safety Report 11490415 (Version 2)
Quarter: 2015Q4

REPORT INFORMATION
  Report Type: Spontaneous
  Country: US (occurrence: US)
  Receive Date: 20150910
  Receipt Date: 20151217
  Transmission Date: 20160304
  Serious: Yes (Other)
  Sender: FDA-Public Use
  Company Number: US-TEVA-590159USA

PATIENT
  Sex: Male

DRUGS (2)
  1. NUVIGIL [Concomitant]
     Active Substance: ARMODAFINIL
  2. DULOXETINE. [Suspect]
     Active Substance: DULOXETINE
     Indication: FIBROMYALGIA
     Route: 065

REACTIONS (23)
  - Balance disorder [Unknown]
  - Nausea [Unknown]
  - Negative thoughts [Unknown]
  - Paraesthesia [Unknown]
  - Discomfort [Unknown]
  - Depression [Unknown]
  - Hyperhidrosis [Unknown]
  - Gastrointestinal disorder [Unknown]
  - Morbid thoughts [Unknown]
  - Fibromyalgia [Unknown]
  - Pain [Unknown]
  - Abdominal discomfort [Unknown]
  - Depressed mood [Unknown]
  - Eye disorder [Unknown]
  - Intentional product use issue [Unknown]
  - Withdrawal syndrome [Unknown]
  - Product substitution issue [Unknown]
  - Partial seizures [Unknown]
  - Disturbance in attention [Unknown]
  - Dizziness [Unknown]
  - Visual impairment [Unknown]
  - Malaise [Unknown]
  - Mood swings [Unknown]
